FAERS Safety Report 21386815 (Version 6)
Quarter: 2023Q1

REPORT INFORMATION
  Report Type: Report from Study
  Country: KR (occurrence: None)
  Receive Date: 20220928
  Receipt Date: 20230104
  Transmission Date: 20230418
  Serious: Yes (Hospitalization)
  Sender: FDA-Public Use
  Company Number: KR-ROCHE-3170008

PATIENT
  Age: 77 Year
  Sex: Male

DRUGS (38)
  1. ATEZOLIZUMAB [Suspect]
     Active Substance: ATEZOLIZUMAB
     Indication: Oesophageal cancer metastatic
     Dosage: ON 03/AUG/2022 AND 20/SEP/2022 RECENT DOSE OF STUDY DRUG PRIOR TO AE AT 1200 MG
     Route: 042
     Dates: start: 20220803
  2. CISPLATIN [Suspect]
     Active Substance: CISPLATIN
     Indication: Oesophageal cancer metastatic
     Dosage: ON 03/AUG/2022 RECENT DOSE OF STUDY DRUG PRIOR TO AE GIVEN AT 143.2 MG ?20/SEP/2022 RECENT DOSE OF S
     Route: 042
     Dates: start: 20220803
  3. FLUOROURACIL [Suspect]
     Active Substance: FLUOROURACIL
     Indication: Oesophageal cancer metastatic
     Dosage: THE MOST RECENT DOSE OF STUDY DRUG PRIOR TO AE 08/AUG/2022 AT 7560 MG?START DATE OF MOST RECENT DOSE
     Route: 042
     Dates: start: 20220803
  4. NORVASC [Concomitant]
     Active Substance: AMLODIPINE BESYLATE
     Indication: Hypertension
     Route: 048
     Dates: start: 20220729, end: 20221022
  5. DIOVAN [Concomitant]
     Active Substance: VALSARTAN
     Indication: Hypertension
     Route: 048
     Dates: start: 20220729, end: 20221022
  6. LIPITOR [Concomitant]
     Active Substance: ATORVASTATIN CALCIUM
     Indication: Hyperlipidaemia
     Route: 048
     Dates: start: 20220729, end: 20221022
  7. EZETIMIBE [Concomitant]
     Active Substance: EZETIMIBE
     Indication: Hyperlipidaemia
     Route: 048
     Dates: start: 20220729, end: 20221022
  8. GASTER INJECTION [Concomitant]
     Indication: Dysphagia
     Route: 042
     Dates: start: 20220727, end: 20221022
  9. GASOCOL [Concomitant]
     Route: 048
     Dates: start: 20220728, end: 20220728
  10. BROPIUM [Concomitant]
     Route: 030
     Dates: start: 20220728, end: 20220728
  11. DULACKHAN EASY [Concomitant]
     Route: 048
     Dates: start: 20220729, end: 20221022
  12. TRAMADOL HYDROCHLORIDE [Concomitant]
     Active Substance: TRAMADOL HYDROCHLORIDE
     Indication: Pain
     Route: 042
     Dates: start: 20220728, end: 20221022
  13. PANTOPRAZOLE SODIUM [Concomitant]
     Active Substance: PANTOPRAZOLE SODIUM
     Indication: Dysphagia
     Route: 042
     Dates: start: 20220728, end: 20221022
  14. PROPACETAMOL HYDROCHLORIDE [Concomitant]
     Active Substance: PROPACETAMOL HYDROCHLORIDE
     Indication: Pain
     Route: 042
     Dates: start: 20220729, end: 20221022
  15. PROPACETAMOL HYDROCHLORIDE [Concomitant]
     Active Substance: PROPACETAMOL HYDROCHLORIDE
     Indication: Pyrexia
     Route: 042
     Dates: start: 20220920, end: 20220923
  16. PROFA [Concomitant]
     Indication: Pyrexia
     Route: 042
     Dates: start: 20220729, end: 20220802
  17. PROFA [Concomitant]
     Route: 042
     Dates: start: 20220825, end: 20220825
  18. CEFTRIAXONE SODIUM [Concomitant]
     Active Substance: CEFTRIAXONE SODIUM
     Route: 042
     Dates: start: 20220801, end: 20220807
  19. EMEND [Concomitant]
     Active Substance: APREPITANT
     Route: 042
     Dates: start: 20220803, end: 20220920
  20. ALOXI [Concomitant]
     Active Substance: PALONOSETRON HYDROCHLORIDE
     Route: 042
     Dates: start: 20220803, end: 20220920
  21. LASIX [Concomitant]
     Active Substance: FUROSEMIDE
     Route: 048
     Dates: start: 20220803, end: 20220920
  22. SANCUSO [Concomitant]
     Active Substance: GRANISETRON
     Indication: Nausea
     Dosage: 1 OTHER
     Route: 062
     Dates: start: 20220804, end: 20221022
  23. AMINO ACIDS\DEXTROSE\ELECTROLYTES NOS\SOYBEAN OIL\VITAMINS [Concomitant]
     Active Substance: AMINO ACIDS\DEXTROSE\ELECTROLYTES NOS\SOYBEAN OIL\VITAMINS
     Route: 042
     Dates: start: 20220804, end: 20220927
  24. AMINO ACIDS\DEXTROSE\ELECTROLYTES NOS\SOYBEAN OIL\VITAMINS [Concomitant]
     Active Substance: AMINO ACIDS\DEXTROSE\ELECTROLYTES NOS\SOYBEAN OIL\VITAMINS
     Route: 042
     Dates: start: 20220825
  25. MEGACE [Concomitant]
     Active Substance: MEGESTROL ACETATE
     Indication: Decreased appetite
     Route: 048
     Dates: start: 20220806, end: 20221022
  26. TRIDOL RETARD [Concomitant]
     Indication: Pain
     Route: 048
     Dates: start: 20220808, end: 20221022
  27. URSODIOL [Concomitant]
     Active Substance: URSODIOL
     Indication: Aspartate aminotransferase increased
     Route: 048
     Dates: start: 20220811, end: 20220817
  28. URSODIOL [Concomitant]
     Active Substance: URSODIOL
     Route: 048
     Dates: start: 20220926, end: 20221022
  29. ALMAGEL-F [Concomitant]
     Indication: Diarrhoea
     Route: 048
     Dates: start: 20220825, end: 20221022
  30. POLYBUTINE [Concomitant]
     Indication: Diarrhoea
     Route: 048
     Dates: start: 20220825, end: 20221022
  31. K-CAB [Concomitant]
     Route: 048
     Dates: start: 20220829, end: 20221022
  32. METOCLOPRAMIDE HYDROCHLORIDE [Concomitant]
     Active Substance: METOCLOPRAMIDE HYDROCHLORIDE
     Indication: Nausea
     Route: 042
     Dates: start: 20220829, end: 20221022
  33. METOCLOPRAMIDE HYDROCHLORIDE [Concomitant]
     Active Substance: METOCLOPRAMIDE HYDROCHLORIDE
     Route: 048
     Dates: start: 20220831, end: 20220831
  34. POTASSIUM CHLORIDE [Concomitant]
     Active Substance: POTASSIUM CHLORIDE
     Indication: Hypokalaemia
     Route: 048
     Dates: start: 20220905, end: 20221022
  35. FOTAGEL [Concomitant]
     Indication: Diarrhoea
     Route: 048
     Dates: start: 20220905, end: 20221022
  36. FURTMAN [Concomitant]
     Route: 042
     Dates: start: 20220919, end: 20220926
  37. KABITWIN PERI [Concomitant]
     Route: 042
     Dates: start: 20220919, end: 20220923
  38. CEFTRIAXONE [Concomitant]
     Active Substance: CEFTRIAXONE
     Indication: Pyrexia
     Route: 042
     Dates: start: 20220920, end: 20220920

REACTIONS (2)
  - Oesophageal pain [Recovered/Resolved]
  - Colitis [Recovered/Resolved]

NARRATIVE: CASE EVENT DATE: 20220824
